FAERS Safety Report 9148219 (Version 1)
Quarter: 2013Q1

REPORT INFORMATION
  Report Type: Spontaneous
  Country: CH (occurrence: CH)
  Receive Date: 20130308
  Receipt Date: 20130308
  Transmission Date: 20140127
  Serious: Yes (Hospitalization)
  Sender: FDA-Public Use
  Company Number: CH-009507513-1303CHE000602

PATIENT
  Age: 30 Year
  Sex: Male

DRUGS (4)
  1. REMERON [Suspect]
     Dosage: 100 MG, QD
     Route: 048
     Dates: start: 20121130
  2. HALOPERIDOL [Suspect]
     Dosage: 10 MG, QD
     Route: 048
     Dates: start: 20121129
  3. QUETIAPINE FUMARATE [Suspect]
     Dosage: 400 MG, QD
     Route: 048
     Dates: start: 20121130
  4. STILNOX [Suspect]
     Dosage: 30 MG, QD
     Route: 048
     Dates: start: 20121130

REACTIONS (8)
  - Torticollis [Recovered/Resolved]
  - Dystonia [Recovered/Resolved]
  - Musculoskeletal stiffness [Recovered/Resolved]
  - Eye movement disorder [Recovered/Resolved]
  - Extrapyramidal disorder [Recovered/Resolved]
  - Dysphonia [Unknown]
  - Tachycardia [Unknown]
  - Oxygen saturation normal [Unknown]
